FAERS Safety Report 9099877 (Version 1)
Quarter: 2013Q1

REPORT INFORMATION
  Report Type: Spontaneous
  Country: FR (occurrence: FR)
  Receive Date: 20130214
  Receipt Date: 20130214
  Transmission Date: 20140127
  Serious: Yes (Death, Hospitalization)
  Sender: FDA-Public Use
  Company Number: FR-JNJFOC-20130202639

PATIENT
  Sex: Male

DRUGS (8)
  1. TOPALGIC [Suspect]
     Indication: PROCEDURAL PAIN
     Route: 048
     Dates: start: 20121029
  2. PRADAXA [Suspect]
     Indication: PROPHYLAXIS
     Route: 065
     Dates: start: 20121029
  3. KARDEGIC [Suspect]
     Indication: PROPHYLAXIS
     Route: 048
  4. ALLOPURINOL [Concomitant]
     Indication: PRODUCT USED FOR UNKNOWN INDICATION
     Route: 048
  5. EXFORGE HCT [Concomitant]
     Indication: HYPERTENSION
     Route: 048
  6. METFORMINE [Concomitant]
     Indication: TYPE 2 DIABETES MELLITUS
     Route: 048
  7. LASILIX [Concomitant]
     Indication: HYPERTENSION
     Route: 065
  8. AMIODARONE [Concomitant]
     Indication: ATRIAL FIBRILLATION
     Route: 048

REACTIONS (1)
  - Cardio-respiratory arrest [Fatal]
